FAERS Safety Report 15821405 (Version 1)
Quarter: 2019Q1

REPORT INFORMATION
  Report Type: Spontaneous
  Country: IT (occurrence: IT)
  Receive Date: 20190114
  Receipt Date: 20190114
  Transmission Date: 20190417
  Serious: Yes (Hospitalization)
  Sender: FDA-Public Use
  Company Number: IT-SA-2019SA005725

PATIENT
  Age: 85 Year
  Sex: Female

DRUGS (1)
  1. ENOXAPARIN SODIUM. [Suspect]
     Active Substance: ENOXAPARIN SODIUM
     Indication: ATRIAL FIBRILLATION
     Dosage: 16000 KIU, QD
     Route: 058
     Dates: start: 20181023, end: 20181104

REACTIONS (1)
  - Chest wall haematoma [Recovering/Resolving]

NARRATIVE: CASE EVENT DATE: 20181104
